FAERS Safety Report 7565495-3 (Version None)
Quarter: 2011Q2

REPORT INFORMATION
  Report Type: 
  Country: None (occurrence: None)
  Receive Date: 20110623
  Receipt Date: 20110616
  Transmission Date: 20111010
  Serious: No
  Sender: FDA-Public Use
  Company Number: US-BIOGENIDEC-2011BI022291

PATIENT
  Age: 39 Year
  Sex: Female

DRUGS (2)
  1. TYSABRI [Suspect]
     Indication: MULTIPLE SCLEROSIS
     Route: 042
     Dates: start: 20110121
  2. TYSABRI [Suspect]
     Route: 042
     Dates: start: 20080411, end: 20091116

REACTIONS (5)
  - PYREXIA [None]
  - RASH GENERALISED [None]
  - OEDEMA PERIPHERAL [None]
  - MYALGIA [None]
  - NAUSEA [None]
